FAERS Safety Report 9315447 (Version 2)
Quarter: 2013Q2

REPORT INFORMATION
  Report Type: Spontaneous
  Country: GB (occurrence: GB)
  Receive Date: 20130529
  Receipt Date: 20130529
  Transmission Date: 20140414
  Serious: Yes (Hospitalization)
  Sender: FDA-Public Use
  Company Number: GB-JNJFOC-2005138306

PATIENT
  Age: 8 Year
  Sex: Female

DRUGS (3)
  1. IBUPROFEN [Suspect]
     Indication: PYREXIA
     Dosage: DAILY DOSE TEXT: 100 MG ONCE (5 MG/KG)
     Route: 065
  2. FLUCLOXACILLIN [Suspect]
     Indication: PYREXIA
     Dosage: DAILY DOSE TEXT: UNSPECIFIED
     Route: 065
  3. ANTIBIOTICS [Concomitant]
     Indication: PROPHYLAXIS
     Dosage: DAILY DOSE TEXT: UNSPECIFIED
     Route: 065

REACTIONS (5)
  - Renal failure chronic [Not Recovered/Not Resolved]
  - Dehydration [None]
  - Renal ischaemia [None]
  - Malaise [None]
  - Haemodialysis [None]
